FAERS Safety Report 9842182 (Version 2)
Quarter: 2014Q2

REPORT INFORMATION
  Report Type: Spontaneous
  Country: US (occurrence: US)
  Receive Date: 20140124
  Receipt Date: 20140507
  Transmission Date: 20141212
  Serious: No
  Sender: FDA-Public Use
  Company Number: PHEH2014US001408

PATIENT
  Sex: Female

DRUGS (7)
  1. EXJADE [Suspect]
     Indication: SICKLE CELL ANAEMIA
     Dosage: 3 DF, QD
     Route: 048
  2. EXJADE [Suspect]
     Indication: HAEMOCHROMATOSIS
     Dosage: 500 MG, QD (ONCE DAILY)
     Route: 048
  3. EXJADE [Suspect]
     Indication: CARDIAC FAILURE CONGESTIVE
  4. EXJADE [Suspect]
     Indication: OFF LABEL USE
  5. FOLIC ACID [Concomitant]
     Dosage: 1 MG, BID
  6. HIDROXINA [Concomitant]
     Dosage: 50 MG, BID
  7. MORPHINE [Concomitant]
     Dosage: UNK UKN, PRN

REACTIONS (4)
  - Feeling abnormal [Unknown]
  - Gastrointestinal disorder [Unknown]
  - Dizziness [Unknown]
  - Diarrhoea [Unknown]
